FAERS Safety Report 22095608 (Version 1)
Quarter: 2023Q1

REPORT INFORMATION
  Report Type: Spontaneous
  Country: US (occurrence: US)
  Receive Date: 20230314
  Receipt Date: 20230314
  Transmission Date: 20230418
  Serious: Yes (Hospitalization, Other)
  Sender: FDA-Public Use
  Company Number: US-PFIZER INC-202300100256

PATIENT
  Age: 55 Year
  Sex: Female
  Weight: 72.562 kg

DRUGS (4)
  1. XELJANZ [Suspect]
     Active Substance: TOFACITINIB CITRATE
     Indication: Rheumatoid arthritis
     Dosage: 5 MG (1 TABLET), 2X/DAY
     Route: 048
     Dates: start: 20151010
  2. XELJANZ XR [Suspect]
     Active Substance: TOFACITINIB CITRATE
     Indication: Rheumatoid arthritis
     Dosage: 11 MG, DAILY
     Route: 048
  3. METHOTREXATE [Concomitant]
     Active Substance: METHOTREXATE
     Indication: Rheumatoid arthritis
     Dosage: 2.5 MG, WEEKLY
     Route: 048
  4. PREDNISONE [Concomitant]
     Active Substance: PREDNISONE
     Indication: Rheumatoid arthritis
     Dosage: 2.5 MG, DAILY
     Route: 048

REACTIONS (11)
  - Cerebrovascular accident [Unknown]
  - Cerebral atrophy [Unknown]
  - Lacunar infarction [Unknown]
  - Myalgia [Unknown]
  - Iron deficiency [Unknown]
  - COVID-19 pneumonia [Recovered/Resolved]
  - Tachycardia [Unknown]
  - Diverticulum [Unknown]
  - Haemorrhoids [Unknown]
  - Left ventricular hypertrophy [Unknown]
  - Systolic dysfunction [Unknown]

NARRATIVE: CASE EVENT DATE: 20171030
